FAERS Safety Report 6706118-2 (Version None)
Quarter: 2010Q2

REPORT INFORMATION
  Report Type: 
  Country: None (occurrence: None)
  Receive Date: 20100430
  Receipt Date: 20100430
  Transmission Date: 20101027
  Serious: Yes (Death)
  Sender: FDA-Public Use
  Company Number: None

PATIENT
  Sex: Female
  Weight: 72.5755 kg

DRUGS (1)
  1. AVELOX [Suspect]
     Indication: RESPIRATORY TRACT INFECTION
     Dosage: 400 MG ONCE DAILY ORAL
     Route: 048
     Dates: start: 20100308

REACTIONS (6)
  - BURNING SENSATION [None]
  - DIZZINESS [None]
  - DYSPHONIA [None]
  - FALL [None]
  - PRURITUS [None]
  - PULSE ABSENT [None]
